FAERS Safety Report 12172952 (Version 1)
Quarter: 2016Q1

REPORT INFORMATION
  Report Type: Spontaneous
  Country: NL (occurrence: NL)
  Receive Date: 20160311
  Receipt Date: 20160311
  Transmission Date: 20160526
  Serious: Yes (Other)
  Sender: FDA-Public Use
  Company Number: NL-BAYER-2016-043489

PATIENT
  Age: 33 Year
  Sex: Female
  Weight: 60 kg

DRUGS (2)
  1. FRAXIPARINE [Concomitant]
     Active Substance: NADROPARIN CALCIUM
     Dosage: 1 DF, QD
     Route: 058
     Dates: start: 20160121, end: 20160301
  2. ASPIRIN. [Suspect]
     Active Substance: ASPIRIN
     Indication: FOETAL GROWTH RESTRICTION
     Dosage: 80 MG, QD
     Route: 048
     Dates: start: 20160121, end: 20160229

REACTIONS (1)
  - Premature separation of placenta [Unknown]

NARRATIVE: CASE EVENT DATE: 20160229
